FAERS Safety Report 7217308-7 (Version None)
Quarter: 2011Q1

REPORT INFORMATION
  Report Type: 
  Country: None (occurrence: None)
  Receive Date: 20110110
  Receipt Date: 20110104
  Transmission Date: 20110831
  Serious: Yes (Life-Threatening, Hospitalization)
  Sender: FDA-Public Use
  Company Number: DE-SANOFI-AVENTIS-2010SA072959

PATIENT
  Age: 32 Year
  Sex: Male
  Weight: 86 kg

DRUGS (1)
  1. TRENTAL [Suspect]
     Dosage: 1 G TO 2 G DAILY
     Route: 048
     Dates: start: 20100801, end: 20101001

REACTIONS (3)
  - VENTRICULAR FIBRILLATION [None]
  - OVERDOSE [None]
  - ARRHYTHMIA [None]
